FAERS Safety Report 23234703 (Version 1)
Quarter: 2023Q4

REPORT INFORMATION
  Report Type: Spontaneous
  Country: US (occurrence: US)
  Receive Date: 20231128
  Receipt Date: 20231128
  Transmission Date: 20240110
  Serious: Yes (Hospitalization, Other)
  Sender: FDA-Public Use
  Company Number: US-AMX-006357

PATIENT
  Sex: Male
  Weight: 60.33 kg

DRUGS (4)
  1. RELYVRIO [Suspect]
     Active Substance: SODIUM PHENYLBUTYRATE\TAURURSODIOL
     Indication: Amyotrophic lateral sclerosis
     Dosage: 1 SACHET ONCE DAILY FOR 3 WEEKS THEN 1 SACHET TWICE DAILY
     Route: 048
  2. RILUZOLE [Concomitant]
     Active Substance: RILUZOLE
     Indication: Product used for unknown indication
  3. RADICAVA [Suspect]
     Active Substance: EDARAVONE
     Indication: Amyotrophic lateral sclerosis
     Dosage: 5 ML FOR 10 OUT OF 14 DAYS, THEN 14 DAYS OFF
     Route: 065
  4. RADICAVA [Suspect]
     Active Substance: EDARAVONE
     Indication: Amyotrophic lateral sclerosis
     Dosage: 5 ML FOR 10 OUT OF 14 DAYS, THEN 14 DAYS OFF (THIRD CYCLE)
     Route: 065
     Dates: start: 20230803

REACTIONS (4)
  - Pneumonia [Unknown]
  - Pancreatitis [Unknown]
  - Ileus [Unknown]
  - Colitis [Unknown]
